FAERS Safety Report 7551356-2 (Version None)
Quarter: 2011Q2

REPORT INFORMATION
  Report Type: 
  Country: None (occurrence: None)
  Receive Date: 20110616
  Receipt Date: 20110608
  Transmission Date: 20111010
  Serious: Yes (Hospitalization)
  Sender: FDA-Public Use
  Company Number: GB-ROCHE-477634

PATIENT
  Sex: Female
  Weight: 67 kg

DRUGS (15)
  1. CAPECITABINE [Suspect]
     Route: 048
     Dates: end: 20070130
  2. CAPECITABINE [Suspect]
     Dosage: THERAPY RESTARTED.
     Route: 048
     Dates: start: 20070201
  3. BEVACIZUMAB [Suspect]
     Dosage: DOSAGE FORM REPORTED AS INFUSION. LAST DOSE PRIOR TO SAE 26 JAN 2007.
     Route: 042
     Dates: start: 20061214
  4. FLOXACILLIN SODIUM [Concomitant]
     Dosage: TTD: NK/MG
     Dates: start: 20070101, end: 20070101
  5. DEXAMETHASONE [Concomitant]
  6. BENDROFLUAZIDE [Concomitant]
     Dates: start: 20070126
  7. CAPECITABINE [Suspect]
     Dosage: FREQUENCY REPORTED AS 2X.
     Route: 048
     Dates: start: 20061214, end: 20070108
  8. LANSOPRAZOLE [Concomitant]
  9. LORAZEPAM [Concomitant]
  10. METOCLOPRAMIDE [Concomitant]
  11. OXALIPLATIN [Suspect]
     Dosage: DOSAGE FORM REPORTED AS INFUSION, LAST DOSE PRIOR TO SAE ON 26 JAN 2007
     Route: 042
     Dates: start: 20061214
  12. ASPIRIN [Suspect]
     Dosage: START DATE: 2007
     Route: 065
     Dates: end: 20070116
  13. LOPERAMIDE [Concomitant]
  14. METOCLOPRAMIDE [Concomitant]
  15. CETUXIMAB [Suspect]
     Route: 065

REACTIONS (3)
  - VOMITING [None]
  - THROAT TIGHTNESS [None]
  - FAECES DISCOLOURED [None]
